FAERS Safety Report 8402992-2 (Version None)
Quarter: 2012Q2

REPORT INFORMATION
  Report Type: 
  Country: None (occurrence: None)
  Receive Date: 20120601
  Receipt Date: 20120530
  Transmission Date: 20120825
  Serious: Yes (Death)
  Sender: FDA-Public Use
  Company Number: VE-ABBOTT-12P-178-0940842-00

PATIENT
  Sex: Female

DRUGS (1)
  1. HUMIRA [Suspect]
     Indication: RHEUMATOID ARTHRITIS
     Route: 058
     Dates: start: 20090101, end: 20100101

REACTIONS (4)
  - ABDOMINAL DISCOMFORT [None]
  - INFARCTION [None]
  - CEREBROVASCULAR ACCIDENT [None]
  - ASTHENIA [None]
